FAERS Safety Report 9849647 (Version 1)
Quarter: 2014Q1

REPORT INFORMATION
  Report Type: Spontaneous
  Country: US (occurrence: US)
  Receive Date: 20140128
  Receipt Date: 20140128
  Transmission Date: 20141002
  Serious: No
  Sender: FDA-Public Use
  Company Number: US-PFIZER INC-2014022584

PATIENT
  Age: 55 Year
  Sex: Female
  Weight: 82.54 kg

DRUGS (1)
  1. IBUPROFEN [Suspect]
     Indication: PAIN
     Dosage: 800 MG, TWO TIMES A DAY
     Dates: start: 201401

REACTIONS (2)
  - Overdose [Unknown]
  - Drug ineffective [Unknown]
